FAERS Safety Report 10618416 (Version 2)
Quarter: 2015Q4

REPORT INFORMATION
  Report Type: Spontaneous
  Country: US (occurrence: US)
  Receive Date: 20141202
  Receipt Date: 20151116
  Transmission Date: 20160304
  Serious: No
  Sender: FDA-Public Use
  Company Number: US-BIOGENIDEC-2014BI124301

PATIENT
  Age: 43 Year
  Sex: Male
  Weight: 79 kg

DRUGS (13)
  1. HUMULIN R [Concomitant]
     Active Substance: INSULIN HUMAN
  2. APIDRA [Concomitant]
     Active Substance: INSULIN GLULISINE
  3. BIOTIN [Concomitant]
     Active Substance: BIOTIN
  4. NAPHAZOLINE HYDROCHLORIDE. [Concomitant]
     Active Substance: NAPHAZOLINE HYDROCHLORIDE
  5. AMPYRA [Concomitant]
     Active Substance: DALFAMPRIDINE
     Indication: GAIT DISTURBANCE
     Route: 048
  6. REGULAR INSULIN [Concomitant]
     Active Substance: INSULIN NOS
  7. COPAXONE [Concomitant]
     Active Substance: GLATIRAMER ACETATE
     Dates: start: 201209
  8. TECFIDERA [Suspect]
     Active Substance: DIMETHYL FUMARATE
     Indication: MULTIPLE SCLEROSIS
     Route: 048
     Dates: start: 201312, end: 2014
  9. VIT B COMPLEX [Concomitant]
  10. VITAMIN D3 [Concomitant]
     Active Substance: CHOLECALCIFEROL
  11. ADVIL [Concomitant]
     Active Substance: IBUPROFEN
  12. NPH INSULIN [Concomitant]
     Active Substance: INSULIN BEEF
  13. MAGNESIUM [Concomitant]
     Active Substance: MAGNESIUM

REACTIONS (2)
  - Fatigue [Unknown]
  - Dyspnoea [Unknown]
